FAERS Safety Report 13859629 (Version 2)
Quarter: 2017Q4

REPORT INFORMATION
  Report Type: Spontaneous
  Country: US (occurrence: US)
  Receive Date: 20170811
  Receipt Date: 20171004
  Transmission Date: 20180320
  Serious: No
  Sender: FDA-Public Use
  Company Number: US-PFIZER INC-2017339481

PATIENT
  Age: 52 Year
  Sex: Female
  Weight: 61.22 kg

DRUGS (2)
  1. IBRANCE [Suspect]
     Active Substance: PALBOCICLIB
     Dosage: 100 MG, CYCLIC [D1-21 Q28 DAYS]
     Route: 048
     Dates: start: 20170428, end: 201708
  2. IBRANCE [Suspect]
     Active Substance: PALBOCICLIB
     Indication: BREAST CANCER METASTATIC
     Dosage: 100 MG, (DAILY FOR 21 DAYS, OFF 7 DAYS)
     Route: 048
     Dates: end: 20170803

REACTIONS (1)
  - Neoplasm progression [Unknown]
